FAERS Safety Report 20559244 (Version 1)
Quarter: 2022Q1

REPORT INFORMATION
  Report Type: Spontaneous
  Country: US (occurrence: US)
  Receive Date: 20220307
  Receipt Date: 20220307
  Transmission Date: 20220423
  Serious: No
  Sender: FDA-Public Use
  Company Number: US-TEVA-2022-US-2007723

PATIENT
  Sex: Female

DRUGS (1)
  1. BUPRENORPHINE [Suspect]
     Active Substance: BUPRENORPHINE
     Dosage: 20 MICROGRAM DAILY; STRENGTH: 20 MCG/HR
     Route: 062
     Dates: start: 202105

REACTIONS (2)
  - Product adhesion issue [Unknown]
  - Fatigue [Unknown]
